FAERS Safety Report 16806817 (Version 2)
Quarter: 2019Q3

REPORT INFORMATION
  Report Type: Spontaneous
  Country: JP (occurrence: JP)
  Receive Date: 20190913
  Receipt Date: 20190927
  Transmission Date: 20191005
  Serious: Yes (Other)
  Sender: FDA-Public Use
  Company Number: JP-MYLANLABS-2019M1085820

PATIENT
  Age: 45 Year
  Sex: Female

DRUGS (1)
  1. TAMOXIFEN (TAMOXIFEN) [Suspect]
     Active Substance: TAMOXIFEN
     Indication: PRODUCT USED FOR UNKNOWN INDICATION
     Route: 048

REACTIONS (2)
  - Hysterectomy [Unknown]
  - No adverse event [Unknown]
